FAERS Safety Report 8477505-X (Version None)
Quarter: 2012Q2

REPORT INFORMATION
  Report Type: 
  Country: None (occurrence: None)
  Receive Date: 20120629
  Receipt Date: 20120622
  Transmission Date: 20120825
  Serious: Yes (Death, Hospitalization, Other)
  Sender: FDA-Public Use
  Company Number: PHHY2012AR004506

PATIENT
  Sex: Female

DRUGS (2)
  1. EXELON [Suspect]
     Indication: DEMENTIA ALZHEIMER'S TYPE
  2. EXELON [Suspect]
     Indication: MEMORY IMPAIRMENT
     Dosage: UNK
     Route: 062
     Dates: start: 20111101

REACTIONS (9)
  - DEPRESSED MOOD [None]
  - ABNORMAL BEHAVIOUR [None]
  - CARDIAC ARREST [None]
  - CEREBROVASCULAR ACCIDENT [None]
  - PAIN [None]
  - TREMOR [None]
  - DECREASED APPETITE [None]
  - AGGRESSION [None]
  - FALL [None]
